FAERS Safety Report 8100173 (Version 6)
Quarter: 2013Q4

REPORT INFORMATION
  Report Type: Spontaneous
  Country: US (occurrence: US)
  Receive Date: 20110822
  Receipt Date: 20131122
  Transmission Date: 20140711
  Serious: Yes (Hospitalization)
  Sender: FDA-Public Use
  Company Number: US-GLAXOSMITHKLINE-A0915699A

PATIENT
  Age: 55 Year
  Sex: Female

DRUGS (1)
  1. AVANDIA [Suspect]
     Indication: DIABETES MELLITUS
     Dosage: 4MG PER DAY
     Route: 048
     Dates: start: 200209, end: 200703

REACTIONS (5)
  - Cerebrovascular accident [Unknown]
  - Coronary artery disease [Unknown]
  - Balance disorder [Unknown]
  - Dyspnoea [Unknown]
  - Fatigue [Unknown]
